FAERS Safety Report 4592823-3 (Version None)
Quarter: 2005Q1

REPORT INFORMATION
  Report Type: 
  Country: None (occurrence: None)
  Receive Date: 20050228
  Receipt Date: 20050215
  Transmission Date: 20050727
  Serious: Yes (Other)
  Sender: FDA-Public Use
  Company Number: US-GLAXOSMITHKLINE-A0545648A

PATIENT
  Age: 69 Year
  Sex: Female

DRUGS (2)
  1. AQUAFRESH FLUORIDE PROTECTION TOOTHPASTE [Suspect]
     Indication: DENTAL CLEANING
     Dates: start: 19940101
  2. AQUAFRESH EXTRA FRESH BREATH TOOTHPASTE TUBE [Suspect]
     Indication: DENTAL CLEANING
     Dates: start: 20050101, end: 20050201

REACTIONS (4)
  - CORNEAL TRANSPLANT [None]
  - FUCHS' SYNDROME [None]
  - ORAL PAIN [None]
  - SLEEP APNOEA SYNDROME [None]
